FAERS Safety Report 25268080 (Version 1)
Quarter: 2025Q2

REPORT INFORMATION
  Report Type: Spontaneous
  Country: JP (occurrence: JP)
  Receive Date: 20250505
  Receipt Date: 20250505
  Transmission Date: 20250717
  Serious: Yes (Hospitalization, Disabling)
  Sender: STRIDES
  Company Number: None

PATIENT
  Age: 65 Year
  Sex: Male
  Weight: 63.8 kg

DRUGS (2)
  1. FUROSEMIDE [Suspect]
     Active Substance: FUROSEMIDE
     Indication: Oedema
     Route: 065
  2. FUROSEMIDE [Suspect]
     Active Substance: FUROSEMIDE
     Route: 065

REACTIONS (3)
  - Vitamin B1 deficiency [Recovering/Resolving]
  - Cardiomyopathy [Recovering/Resolving]
  - Neuropathy peripheral [Recovering/Resolving]
